FAERS Safety Report 8403059-X (Version None)
Quarter: 2012Q2

REPORT INFORMATION
  Report Type: 
  Country: None (occurrence: None)
  Receive Date: 20120601
  Receipt Date: 20120523
  Transmission Date: 20120825
  Serious: Yes (Hospitalization, Other)
  Sender: FDA-Public Use
  Company Number: US-ELI_LILLY_AND_COMPANY-US201205008904

PATIENT
  Sex: Female

DRUGS (2)
  1. HUMALOG [Suspect]
     Dosage: UNK, PRN
  2. HUMALOG [Suspect]
     Indication: TYPE 2 DIABETES MELLITUS
     Dosage: UNK, PRN

REACTIONS (12)
  - MEMORY IMPAIRMENT [None]
  - INFECTION [None]
  - COMA [None]
  - PERONEAL NERVE PALSY [None]
  - CEREBROVASCULAR ACCIDENT [None]
  - GASTROINTESTINAL SURGERY [None]
  - VASCULITIS CEREBRAL [None]
  - BLINDNESS UNILATERAL [None]
  - CROHN'S DISEASE [None]
  - HEMIPLEGIA [None]
  - VISUAL IMPAIRMENT [None]
  - HEMIPARESIS [None]
